FAERS Safety Report 6766685-X (Version None)
Quarter: 2010Q2

REPORT INFORMATION
  Report Type: 
  Country: None (occurrence: None)
  Receive Date: 20100611
  Receipt Date: 20100607
  Transmission Date: 20101027
  Serious: Yes (Death, Other)
  Sender: FDA-Public Use
  Company Number: US-ROXANE LABORATORIES, INC.-2010-RO-00686RO

PATIENT
  Age: 50 Year
  Sex: Male

DRUGS (7)
  1. MERCAPTOPURINE [Suspect]
     Indication: CROHN'S DISEASE
     Dosage: 100 MG
  2. FLUCONAZOLE [Suspect]
     Indication: COCCIDIOIDOMYCOSIS
     Dosage: 1000 MG
  3. MESALAZINE [Suspect]
     Indication: CROHN'S DISEASE
     Dosage: 2 G
  4. HYOSCYAMINE [Suspect]
     Indication: CROHN'S DISEASE
     Dosage: 1.47 MG
  5. ADALIMUMAB [Suspect]
     Indication: CROHN'S DISEASE
  6. AMPHOTERICIN B [Suspect]
     Indication: COCCIDIOIDOMYCOSIS
     Dosage: 60 MG
  7. AMPHOTERICIN B [Suspect]
     Indication: COCCIDIOIDOMYCOSIS
     Dosage: 300 MG

REACTIONS (7)
  - ANAEMIA [None]
  - BLOOD ALKALINE PHOSPHATASE INCREASED [None]
  - CARDIAC MURMUR [None]
  - COCCIDIOIDOMYCOSIS [None]
  - HYPOCALCAEMIA [None]
  - HYPONATRAEMIA [None]
  - RENAL FAILURE ACUTE [None]
